FAERS Safety Report 16704556 (Version 4)
Quarter: 2019Q3

REPORT INFORMATION
  Report Type: Spontaneous
  Country: GB (occurrence: GB)
  Receive Date: 20190814
  Receipt Date: 20190821
  Transmission Date: 20191004
  Serious: Yes (Death, Other)
  Sender: FDA-Public Use
  Company Number: GB-009507513-1908GBR004656

PATIENT
  Age: 79 Year
  Sex: Male

DRUGS (1)
  1. MK-3475 [Suspect]
     Active Substance: PEMBROLIZUMAB
     Dosage: 2 INFUSIONS AT 3 WEEKLY INTERVALS (Q3W), 200 MILLIGRAM FLAT DOSE

REACTIONS (5)
  - Immune-mediated adverse reaction [Fatal]
  - Lymphocytic infiltration [Unknown]
  - Pleural effusion [Not Recovered/Not Resolved]
  - Respiratory failure [Not Recovered/Not Resolved]
  - Myocarditis [Fatal]
